FAERS Safety Report 25992806 (Version 2)
Quarter: 2025Q4

REPORT INFORMATION
  Report Type: Spontaneous
  Country: US (occurrence: US)
  Receive Date: 20251103
  Receipt Date: 20251130
  Transmission Date: 20260117
  Serious: No
  Sender: TEIKOKU
  Company Number: US-TPU-TPU-2025-00503

PATIENT
  Sex: Female

DRUGS (4)
  1. LIDOCAINE PATCH [Suspect]
     Active Substance: LIDOCAINE
     Indication: Pain
     Dates: start: 2024
  2. LIDOCAINE PATCH [Suspect]
     Active Substance: LIDOCAINE
  3. CALCIUM [Concomitant]
     Active Substance: CALCIUM
  4. ZINC [Concomitant]
     Active Substance: ZINC

REACTIONS (2)
  - Drug ineffective [Unknown]
  - Therapeutic product effect incomplete [Unknown]
